FAERS Safety Report 16033002 (Version 2)
Quarter: 2019Q1

REPORT INFORMATION
  Report Type: Spontaneous
  Country: IT (occurrence: IT)
  Receive Date: 20190305
  Receipt Date: 20190325
  Transmission Date: 20190418
  Serious: Yes (Life-Threatening, Other)
  Sender: FDA-Public Use
  Company Number: IT-ACCORD-110223

PATIENT
  Age: 75 Year
  Sex: Male

DRUGS (2)
  1. CISPLATIN. [Suspect]
     Active Substance: CISPLATIN
     Indication: METASTASES TO CENTRAL NERVOUS SYSTEM
  2. ETOPOSIDE. [Suspect]
     Active Substance: ETOPOSIDE
     Indication: NEUROENDOCRINE TUMOUR

REACTIONS (1)
  - Drug ineffective [Unknown]
